FAERS Safety Report 7831847-7 (Version None)
Quarter: 2011Q4

REPORT INFORMATION
  Report Type: 
  Country: None (occurrence: None)
  Receive Date: 20111021
  Receipt Date: 20111017
  Transmission Date: 20120403
  Serious: Yes (Other)
  Sender: FDA-Public Use
  Company Number: US-PFIZER INC-2011181845

PATIENT
  Sex: Female
  Weight: 89.796 kg

DRUGS (12)
  1. CHANTIX [Suspect]
     Indication: SMOKING CESSATION THERAPY
     Dosage: 0.5 MG, 1X/DAY
     Route: 048
     Dates: start: 20110715
  2. ZOCOR [Concomitant]
     Dosage: 40 MG, UNK
  3. LISINOPRIL [Concomitant]
     Dosage: 40 MG, UNK
  4. LASIX [Concomitant]
     Dosage: 40 MG, UNK
  5. NEURONTIN [Concomitant]
     Dosage: 300 MG, UNK
  6. LEVOTHYROXINE [Concomitant]
     Dosage: 25 MG, UNK
  7. OXYCODONE [Concomitant]
     Dosage: 10 MG, UNK
  8. CHANTIX [Suspect]
     Dosage: 1 MG, 2X/DAY
     Dates: start: 20110801
  9. XANAX [Concomitant]
     Dosage: 2 MG, UNK
  10. SPIRONOLACTONE [Concomitant]
     Dosage: 25 MG, UNK
  11. LOPRESSOR [Concomitant]
     Dosage: 50 MG, UNK
  12. LOPID [Concomitant]
     Dosage: 600 MG, UNK

REACTIONS (2)
  - DIZZINESS [None]
  - PRESYNCOPE [None]
